FAERS Safety Report 8057184-6 (Version None)
Quarter: 2012Q1

REPORT INFORMATION
  Report Type: 
  Country: None (occurrence: None)
  Receive Date: 20120119
  Receipt Date: 20120112
  Transmission Date: 20120608
  Serious: Yes (Other)
  Sender: FDA-Public Use
  Company Number: PHHY2012JP003383

PATIENT

DRUGS (1)
  1. VOLTAREN [Suspect]
     Dosage: UNK
     Route: 054

REACTIONS (1)
  - ILEUS [None]
